FAERS Safety Report 13938408 (Version 1)
Quarter: 2017Q3

REPORT INFORMATION
  Report Type: Spontaneous
  Country: DE (occurrence: DE)
  Receive Date: 20170905
  Receipt Date: 20170905
  Transmission Date: 20171127
  Serious: Yes (Congenital Anomaly, Other)
  Sender: FDA-Public Use
  Company Number: DE-MYLANLABS-2017M1053766

PATIENT
  Sex: Male
  Weight: .28 kg

DRUGS (4)
  1. GRIPPEIMPFSTOFF [Concomitant]
     Active Substance: INFLUENZA VIRUS VACCINE
     Indication: IMMUNISATION
     Dosage: IT WAS APPROXIMATE GESTATIONAL WEEK 5 1/7
     Route: 064
  2. FOLIO FORTE [Concomitant]
     Active Substance: FOLIC ACID\VITAMINS
     Indication: PROPHYLAXIS OF NEURAL TUBE DEFECT
     Dosage: 0.8 [MG/D ]/ SINCE OCTOBER 2016
     Route: 064
     Dates: start: 20161219, end: 20170524
  3. ESCITALOPRAM [Suspect]
     Active Substance: ESCITALOPRAM OXALATE
     Indication: DEPRESSION
     Dosage: 20 [MG/D ]
     Route: 064
     Dates: start: 20161219, end: 20170306
  4. LORATADIN [Concomitant]
     Active Substance: LORATADINE
     Indication: HYPERSENSITIVITY
     Dosage: 10 [MG/D ]
     Route: 064
     Dates: start: 20161219, end: 20170120

REACTIONS (4)
  - Foetal exposure during pregnancy [Recovered/Resolved]
  - Encephalocele [Not Recovered/Not Resolved]
  - Cardiomegaly [Not Recovered/Not Resolved]
  - Dextrocardia [Not Recovered/Not Resolved]
